FAERS Safety Report 19803246 (Version 1)
Quarter: 2021Q3

REPORT INFORMATION
  Report Type: Report from Study
  Country: US (occurrence: US)
  Receive Date: 20210908
  Receipt Date: 20210908
  Transmission Date: 20211014
  Serious: Yes (Death, Life-Threatening, Other)
  Sender: FDA-Public Use
  Company Number: US-GILEAD-2021-0547459

PATIENT
  Age: 80 Year
  Sex: Female

DRUGS (5)
  1. ATORVASTATIN [Concomitant]
     Active Substance: ATORVASTATIN
  2. CARTIA XT [Concomitant]
     Active Substance: DILTIAZEM HYDROCHLORIDE
  3. AMBRISENTAN [Suspect]
     Active Substance: AMBRISENTAN
     Indication: PULMONARY ARTERIAL HYPERTENSION
     Dosage: 10 MG, QD
     Route: 065
     Dates: start: 20180327, end: 20210721
  4. MULTIPLE VITAMIN [Concomitant]
     Active Substance: VITAMINS
  5. SILDENAFIL. [Concomitant]
     Active Substance: SILDENAFIL

REACTIONS (1)
  - Death [Fatal]

NARRATIVE: CASE EVENT DATE: 20210721
